FAERS Safety Report 7183622-7 (Version None)
Quarter: 2010Q4

REPORT INFORMATION
  Report Type: 
  Country: None (occurrence: None)
  Receive Date: 20101220
  Receipt Date: 20101220
  Transmission Date: 20110411
  Serious: Yes (Hospitalization)
  Sender: FDA-Public Use
  Company Number: None

PATIENT
  Age: 62 Year
  Sex: Male
  Weight: 86.3 kg

DRUGS (11)
  1. PLAVIX [Suspect]
     Indication: CORONARY ARTERY DISEASE
     Dosage: 75MG DAILY PO  CHRONIC
     Route: 048
  2. ASA [Suspect]
     Indication: CORONARY ARTERY DISEASE
     Dosage: 81MG X 2 DAILY PO CHRONIC
     Route: 048
  3. ALEVE [Suspect]
     Indication: CORONARY ARTERY DISEASE
     Dosage: 220MG BID PO CHRONIC
     Route: 048
  4. ACTOS [Concomitant]
  5. METOPROLOL [Concomitant]
  6. OMEPRAZOLE [Concomitant]
  7. JANUMET [Concomitant]
  8. NITROGLYCERIN [Concomitant]
  9. M.V.I. [Concomitant]
  10. SIMVASTATIN [Concomitant]
  11. TRILIPIX [Concomitant]

REACTIONS (6)
  - GASTRIC ULCER [None]
  - GASTROINTESTINAL ARTERIOVENOUS MALFORMATION [None]
  - HAEMORRHAGIC ANAEMIA [None]
  - HIATUS HERNIA [None]
  - SMALL INTESTINAL ULCER HAEMORRHAGE [None]
  - UPPER GASTROINTESTINAL HAEMORRHAGE [None]
